FAERS Safety Report 17322642 (Version 1)
Quarter: 2020Q1

REPORT INFORMATION
  Report Type: Spontaneous
  Country: US (occurrence: US)
  Receive Date: 20200124
  Receipt Date: 20200124
  Transmission Date: 20200409
  Serious: Yes (Other)
  Sender: FDA-Public Use
  Company Number: None

PATIENT
  Age: 40 Year
  Sex: Female
  Weight: 63 kg

DRUGS (2)
  1. LEVULAN KERASTICK [Suspect]
     Active Substance: AMINOLEVULINIC ACID HYDROCHLORIDE
     Indication: SKIN CANCER
     Dosage: ?          QUANTITY:1 APPLICATOR;?
     Route: 061
  2. NIACINAMIDE 500MG [Concomitant]

REACTIONS (2)
  - Skin wrinkling [None]
  - Dry skin [None]

NARRATIVE: CASE EVENT DATE: 20190425
